FAERS Safety Report 14535529 (Version 1)
Quarter: 2018Q1

REPORT INFORMATION
  Report Type: Spontaneous
  Country: US (occurrence: US)
  Receive Date: 20180214
  Receipt Date: 20180214
  Transmission Date: 20180509
  Serious: Yes (Life-Threatening, Hospitalization, Other)
  Sender: FDA-Public Use
  Company Number: None

PATIENT
  Age: 75 Year
  Sex: Male
  Weight: 83 kg

DRUGS (1)
  1. ETOPOSIDE. [Suspect]
     Active Substance: ETOPOSIDE
     Indication: NON-SMALL CELL LUNG CANCER
     Route: 042
     Dates: start: 20180212, end: 20180212

REACTIONS (6)
  - Pulse absent [None]
  - Abdominal discomfort [None]
  - Infusion related reaction [None]
  - Cardio-respiratory arrest [None]
  - Product substitution issue [None]
  - Feeling abnormal [None]

NARRATIVE: CASE EVENT DATE: 20180212
